FAERS Safety Report 7337768-0 (Version None)
Quarter: 2011Q1

REPORT INFORMATION
  Report Type: 
  Country: None (occurrence: None)
  Receive Date: 20110224
  Receipt Date: 20110211
  Transmission Date: 20110831
  Serious: Yes (Other)
  Sender: FDA-Public Use
  Company Number: 2011000713

PATIENT
  Age: 72 Year
  Sex: Male

DRUGS (2)
  1. ERIBULIN MESYLATE [Suspect]
     Indication: NON-SMALL CELL LUNG CANCER
     Dosage: 1.4 MG/M2, 2 X PER 28 DAY, INTRAVENOUS
     Route: 042
     Dates: start: 20101125
  2. ERLOTINIB (ERLOTINIB) (TABLET) (ERLOTINIB) [Suspect]
     Indication: NON-SMALL CELL LUNG CANCER
     Dosage: 150 MG, 14 X PER 28 DAY, ORAL
     Route: 048
     Dates: start: 20101209

REACTIONS (1)
  - NEUTROPENIA [None]
